FAERS Safety Report 10191989 (Version 2)
Quarter: 2014Q2

REPORT INFORMATION
  Report Type: Spontaneous
  Country: US (occurrence: US)
  Receive Date: 20140523
  Receipt Date: 20140605
  Transmission Date: 20141212
  Serious: Yes (Hospitalization, Other)
  Sender: FDA-Public Use
  Company Number: US-JNJFOC-20140509494

PATIENT
  Sex: Male
  Weight: 79.7 kg

DRUGS (7)
  1. XARELTO [Suspect]
     Indication: PRODUCT USED FOR UNKNOWN INDICATION
     Route: 048
  2. AGGRENOX [Suspect]
     Indication: HEADACHE
     Route: 065
  3. AGGRENOX [Suspect]
     Indication: CEREBROVASCULAR ACCIDENT PROPHYLAXIS
     Route: 065
  4. LOSARTAN [Concomitant]
     Indication: BLADDER DISORDER
     Route: 065
  5. AMLODIPINE [Concomitant]
     Indication: BLADDER DISORDER
     Route: 065
  6. PRAVACHOL [Concomitant]
     Indication: BLADDER DISORDER
     Route: 065
  7. SYNTHROID [Concomitant]
     Indication: PRODUCT USED FOR UNKNOWN INDICATION
     Route: 065

REACTIONS (3)
  - Brain stem infarction [Recovered/Resolved]
  - Gastrointestinal angiodysplasia haemorrhagic [Recovered/Resolved]
  - Anaemia [Recovered/Resolved]
